FAERS Safety Report 18609945 (Version 1)
Quarter: 2020Q4

REPORT INFORMATION
  Report Type: Spontaneous
  Country: IT (occurrence: IT)
  Receive Date: 20201214
  Receipt Date: 20201214
  Transmission Date: 20210114
  Serious: Yes (Other)
  Sender: FDA-Public Use
  Company Number: IT-TEVA-2020-IT-1857021

PATIENT
  Age: 69 Year
  Sex: Female

DRUGS (2)
  1. PACLITAXEL TEVA 6 MG/ML, CONCENTRATO PER SOLUZIONE PER INFUSIONE [Suspect]
     Active Substance: PACLITAXEL
     Indication: METASTASES TO PERITONEUM
     Dosage: UNIT DOSE : 175 MG
     Route: 042
     Dates: start: 20201123, end: 20201123
  2. CARBOPLATINO BAXTER [Concomitant]
     Active Substance: CARBOPLATIN
     Dates: start: 20201123, end: 20201123

REACTIONS (6)
  - Visual field defect [Recovered/Resolved]
  - Sinus tachycardia [Recovered/Resolved]
  - Abdominal pain upper [Recovered/Resolved]
  - Sense of oppression [Recovered/Resolved]
  - Hyperhidrosis [Recovered/Resolved]
  - Hypotension [Recovered/Resolved]

NARRATIVE: CASE EVENT DATE: 20201123
